FAERS Safety Report 11682691 (Version 4)
Quarter: 2015Q4

REPORT INFORMATION
  Report Type: Spontaneous
  Country: JP (occurrence: JP)
  Receive Date: 20151029
  Receipt Date: 20151229
  Transmission Date: 20160304
  Serious: Yes (Life-Threatening, Hospitalization, Other)
  Sender: FDA-Public Use
  Company Number: JP-GILEAD-2015-0178838AA

PATIENT
  Age: 75 Year
  Sex: Male

DRUGS (8)
  1. ARICEPT [Concomitant]
     Active Substance: DONEPEZIL HYDROCHLORIDE
     Indication: DEMENTIA ALZHEIMER^S TYPE
     Dosage: 5 MG, QD
     Route: 048
     Dates: start: 20150723
  2. CEPHAZOLIN [Suspect]
     Active Substance: CEFAZOLIN
     Indication: PYREXIA
     Dosage: 4 G, UNK
     Route: 065
  3. MEMARY [Concomitant]
     Active Substance: MEMANTINE HYDROCHLORIDE
     Indication: DEMENTIA ALZHEIMER^S TYPE
     Dosage: 20 MG, QD
     Route: 048
     Dates: start: 20150723
  4. COPEGUS [Suspect]
     Active Substance: RIBAVIRIN
     Indication: CHRONIC HEPATITIS C
     Dosage: 300 MG, BID
     Route: 048
     Dates: start: 20151008, end: 20151010
  5. REZALTAS [Concomitant]
     Active Substance: AZELNIDIPINE\OLMESARTAN MEDOXOMIL
     Indication: HYPERTENSION
     Dosage: 1 DF, UNK
     Route: 048
     Dates: start: 20150916
  6. ADALAT [Concomitant]
     Active Substance: NIFEDIPINE
     Indication: HYPERTENSION
     Dosage: 20 MG, QD
     Route: 048
     Dates: start: 20150723
  7. URSO [Concomitant]
     Active Substance: URSODIOL
     Indication: HEPATIC CIRRHOSIS
     Dosage: 200 MG, TID
     Route: 048
     Dates: start: 20150804
  8. SOVALDI [Suspect]
     Active Substance: SOFOSBUVIR
     Indication: CHRONIC HEPATITIS C
     Dosage: 400 MG, QD
     Route: 048
     Dates: start: 20151009, end: 20151010

REACTIONS (3)
  - Seizure [Recovered/Resolved]
  - Blood creatine phosphokinase increased [Recovered/Resolved]
  - Pyrexia [Recovered/Resolved]

NARRATIVE: CASE EVENT DATE: 20151009
